FAERS Safety Report 9021580 (Version 1)
Quarter: 2013Q1

REPORT INFORMATION
  Report Type: Spontaneous
  Country: US (occurrence: US)
  Receive Date: 20130119
  Receipt Date: 20130119
  Transmission Date: 20140127
  Serious: No
  Sender: FDA-Public Use
  Company Number: US-009507513-1301USA004351

PATIENT
  Sex: Female

DRUGS (12)
  1. SINGULAIR [Suspect]
     Dosage: 10 MG, QD
     Route: 048
  2. NEXIUM [Concomitant]
  3. JANUVIA [Concomitant]
  4. GLIPIZIDE [Concomitant]
  5. GLUMETZA [Concomitant]
  6. WELCHOL [Concomitant]
  7. COZAAR [Concomitant]
  8. PULMICORT [Concomitant]
  9. FLONASE [Concomitant]
  10. LIBRAX CAPSULES [Concomitant]
  11. ASPIRIN [Concomitant]
  12. PROVENTIL [Concomitant]

REACTIONS (1)
  - Heart rate increased [Unknown]
